FAERS Safety Report 6784760-0 (Version None)
Quarter: 2010Q2

REPORT INFORMATION
  Report Type: 
  Country: None (occurrence: None)
  Receive Date: 20100622
  Receipt Date: 20091009
  Transmission Date: 20101027
  Serious: No
  Sender: FDA-Public Use
  Company Number: US-ALLERGAN-0914106US

PATIENT
  Sex: Male

DRUGS (1)
  1. SANCTURA [Suspect]
     Indication: DRUG USE FOR UNKNOWN INDICATION
     Dosage: UNK
     Dates: start: 20091008

REACTIONS (4)
  - ABDOMINAL DISCOMFORT [None]
  - DRY MOUTH [None]
  - DYSURIA [None]
  - MICTURITION URGENCY [None]
